FAERS Safety Report 4609860-2 (Version None)
Quarter: 2005Q1

REPORT INFORMATION
  Report Type: 
  Country: None (occurrence: None)
  Receive Date: 20050314
  Receipt Date: 20050314
  Transmission Date: 20050727
  Serious: Yes (Life-Threatening, Other)
  Sender: FDA-Public Use
  Company Number: None

PATIENT
  Age: 7 Year
  Sex: Male
  Weight: 21.7727 kg

DRUGS (1)
  1. METHYLPHENIDATE 10 MG ABLE [Suspect]
     Indication: ATTENTION DEFICIT/HYPERACTIVITY DISORDER
     Dosage: 1 TABLET   MORNING AND NOON   ORAL
     Route: 048
     Dates: start: 20050209, end: 20050307

REACTIONS (8)
  - EMOTIONAL DISORDER [None]
  - FEELING COLD [None]
  - HEART RATE INCREASED [None]
  - MYDRIASIS [None]
  - PERSONALITY CHANGE [None]
  - PHARMACEUTICAL PRODUCT COMPLAINT [None]
  - RESPIRATORY RATE INCREASED [None]
  - TREMOR [None]
